FAERS Safety Report 10394655 (Version 2)
Quarter: 2014Q4

REPORT INFORMATION
  Report Type: Spontaneous
  Country: TW (occurrence: TW)
  Receive Date: 20140820
  Receipt Date: 20141113
  Transmission Date: 20150528
  Serious: Yes (Hospitalization, Other)
  Sender: FDA-Public Use
  Company Number: PHHY2014TW099456

PATIENT
  Age: 6 Year
  Sex: Male
  Weight: 21.7 kg

DRUGS (5)
  1. VOTUBIA [Suspect]
     Active Substance: EVEROLIMUS
     Dosage: 2 DF, QD (2.5 MG)
     Route: 048
     Dates: start: 20120315
  2. TOPIRAMATE. [Suspect]
     Active Substance: TOPIRAMATE
     Indication: PRODUCT USED FOR UNKNOWN INDICATION
     Route: 065
  3. DEPAKINE [Suspect]
     Active Substance: VALPROATE SODIUM
     Indication: PRODUCT USED FOR UNKNOWN INDICATION
     Route: 065
  4. LEVETIRACETAM. [Suspect]
     Active Substance: LEVETIRACETAM
     Indication: PRODUCT USED FOR UNKNOWN INDICATION
     Route: 065
  5. VOTUBIA [Suspect]
     Active Substance: EVEROLIMUS
     Dosage: 2.5 MG, QD
     Route: 065
     Dates: start: 20131018

REACTIONS (13)
  - Cardiac neoplasm unspecified [Unknown]
  - Pollakiuria [Recovered/Resolved]
  - Rash erythematous [Unknown]
  - Pain in extremity [Recovered/Resolved]
  - C-reactive protein increased [Unknown]
  - Tenderness [Unknown]
  - Toothache [Unknown]
  - Cellulitis [Recovered/Resolved]
  - Urinary retention [Recovering/Resolving]
  - Swelling [Not Recovered/Not Resolved]
  - Swelling face [Unknown]
  - Productive cough [Unknown]
  - Cough [Unknown]

NARRATIVE: CASE EVENT DATE: 20140224
